FAERS Safety Report 15798219 (Version 1)
Quarter: 2019Q1

REPORT INFORMATION
  Report Type: Spontaneous
  Country: US (occurrence: US)
  Receive Date: 20190103
  Receipt Date: 20190103
  Transmission Date: 20190417
  Serious: No
  Sender: FDA-Public Use
  Company Number: None

PATIENT

DRUGS (1)
  1. AZATHIOPRINE AZATHIOPRINE [Suspect]
     Active Substance: AZATHIOPRINE

REACTIONS (6)
  - Foetal death [None]
  - Liver disorder [None]
  - Inappropriate schedule of product administration [None]
  - Maternal exposure during pregnancy [None]
  - Transcription medication error [None]
  - Maternal drugs affecting foetus [None]
